FAERS Safety Report 9462053 (Version 1)
Quarter: 2013Q3

REPORT INFORMATION
  Report Type: Spontaneous
  Country: US (occurrence: None)
  Receive Date: 20130816
  Receipt Date: 20130816
  Transmission Date: 20140515
  Serious: Yes (Other)
  Sender: FDA-Public Use
  Company Number: None

PATIENT
  Age: 38 Year
  Sex: Male
  Weight: 74.84 kg

DRUGS (1)
  1. METHYLCOBALAMIN [Suspect]
     Indication: MULTIPLE SCLEROSIS
     Dosage: 0.5 ML- 4 TIMES/WEEK  AT BEDTIME  INTO THE MUSCLE
     Route: 030
     Dates: start: 20111101, end: 20120506

REACTIONS (6)
  - Dizziness [None]
  - Muscle spasms [None]
  - Fatigue [None]
  - Dyspnoea [None]
  - Hypoaesthesia [None]
  - Expired drug administered [None]
